FAERS Safety Report 9505934 (Version 1)
Quarter: 2013Q1

REPORT INFORMATION
  Report Type: Spontaneous
  Country: US (occurrence: None)
  Receive Date: 20130305
  Receipt Date: 20130305
  Transmission Date: 20140127
  Serious: No
  Sender: FDA-Public Use
  Company Number: 1000039630

PATIENT
  Age: 69 Year
  Sex: Female

DRUGS (9)
  1. DALIRESP [Suspect]
     Indication: CHRONIC OBSTRUCTIVE PULMONARY DISEASE
     Dates: start: 20121010
  2. ALBUTEROL (ALBUTEROL) (ALBUTEROL) [Concomitant]
  3. PERFORMISTS (FORMOTEROL FUMARATE) (FORMOTEROL FUMARATE) [Concomitant]
  4. BUDESONIDE (BUDESONIDE) (BUDESONIDE) [Concomitant]
  5. SYNTHROID (LEVOTHYROXINE SODIUM) (LEVOTHYROXINE SODIUM) [Concomitant]
  6. PREDNISONE (PREDNISONE) (PREDNISONE) [Concomitant]
  7. DILTIAZEM (DILTIAZEM HYDROCHLORIDE) [Concomitant]
  8. BUPROPION (BRUPROPION) (BUPROPION) [Concomitant]
  9. LORATIDINE (LORATIDINE) (LORATIDINE) [Concomitant]

REACTIONS (2)
  - Insomnia [None]
  - Back pain [None]
